FAERS Safety Report 4981102-8 (Version None)
Quarter: 2006Q2

REPORT INFORMATION
  Report Type: 
  Country: None (occurrence: None)
  Receive Date: 20060418
  Receipt Date: 20060327
  Transmission Date: 20061013
  Serious: Yes (Life-Threatening, Congenital Anomaly, Other)
  Sender: FDA-Public Use
  Company Number: US200602000109

PATIENT
  Age: 0 Day
  Sex: Female
  Weight: 1.8 kg

DRUGS (5)
  1. PROZAC [Suspect]
     Dosage: TRANSPLACENTAL
     Route: 064
     Dates: start: 20041226, end: 20050730
  2. ZYRTEC [Concomitant]
  3. FLONASE [Concomitant]
  4. PRENATAL VITAMINS (ASCORBIC ACID, BIOTIN, MINERALS NOS, NICOTINIC ACID [Concomitant]
  5. FOLATE SODIUM (FOLATE SODIUM) [Concomitant]

REACTIONS (12)
  - BRANCHIAL CLEFT CYST [None]
  - BRANCHIAL CLEFT SINUS [None]
  - CAESAREAN SECTION [None]
  - DRUG EXPOSURE DURING PREGNANCY [None]
  - DRUG WITHDRAWAL SYNDROME NEONATAL [None]
  - FISTULA [None]
  - INFECTED CYST [None]
  - MATERNAL CONDITION AFFECTING FOETUS [None]
  - NEONATAL RESPIRATORY DISTRESS SYNDROME [None]
  - PREMATURE BABY [None]
  - SMALL FOR DATES BABY [None]
  - WOUND INFECTION STAPHYLOCOCCAL [None]
